FAERS Safety Report 17675766 (Version 2)
Quarter: 2020Q2

REPORT INFORMATION
  Report Type: Report from Study
  Country: CO (occurrence: CO)
  Receive Date: 20200416
  Receipt Date: 20200429
  Transmission Date: 20200714
  Serious: Yes (Hospitalization, Other)
  Sender: FDA-Public Use
  Company Number: CO-ASTELLAS-2020US013591

PATIENT
  Age: 22 Year
  Sex: Male
  Weight: 42 kg

DRUGS (10)
  1. CYCLOSPORINE. [Concomitant]
     Active Substance: CYCLOSPORINE
     Indication: RENAL TRANSPLANT
     Dosage: UNK UNK, UNKNOWN FREQ. (START DATE: FEB-2020 OR MAR-2020)
     Route: 065
  2. PREDNISOLONE. [Concomitant]
     Active Substance: PREDNISOLONE
     Indication: RENAL DISORDER
     Dosage: UNK UNK, UNKNOWN FREQ. (START DATE: FEB-2020 OR MAR-2020)
     Route: 065
  3. MYCOPHENOLATE [Suspect]
     Active Substance: MYCOPHENOLIC ACID
     Indication: RENAL TRANSPLANT
     Dosage: 1 DF, EVERY 12 HOURS (STOP DATE: FEB-2020 OR MAR-2020)
     Route: 048
  4. ERYTHROPOIETIN [Concomitant]
     Active Substance: ERYTHROPOIETIN
     Indication: RENAL DISORDER
     Dosage: UNK UNK, UNKNOWN FREQ. (START DATE: FEB-2020 OR MAR-2020)
     Route: 065
  5. PRAZOSIN. [Concomitant]
     Active Substance: PRAZOSIN
     Indication: BLOOD PRESSURE ABNORMAL
     Dosage: UNK UNK, UNKNOWN FREQ.
     Route: 065
  6. OMEPRAZOLE. [Concomitant]
     Active Substance: OMEPRAZOLE
     Indication: PROPHYLAXIS
     Dosage: UNK UNK, UNKNOWN FREQ.
     Route: 065
  7. CLONIDINE. [Concomitant]
     Active Substance: CLONIDINE
     Indication: BLOOD PRESSURE ABNORMAL
     Dosage: UNK UNK, UNKNOWN FREQ.
     Route: 065
  8. METOPROLOL. [Concomitant]
     Active Substance: METOPROLOL
     Indication: BLOOD PRESSURE ABNORMAL
     Dosage: UNK UNK, UNKNOWN FREQ.
     Route: 065
  9. TACROLIMUS. [Suspect]
     Active Substance: TACROLIMUS
     Indication: RENAL TRANSPLANT
     Dosage: 5 MG, ONCE DAILY (1 CAPSULE OF 5 MG)
     Route: 048
     Dates: start: 20121110, end: 202002
  10. PYRIDOXINE [Concomitant]
     Active Substance: PYRIDOXINE
     Indication: HYPOVITAMINOSIS
     Dosage: UNK UNK, UNKNOWN FREQ. (START DATE: FEB-2020 OR MAR-2020)
     Route: 065

REACTIONS (3)
  - Tuberculosis [Recovering/Resolving]
  - Secondary immunodeficiency [Recovering/Resolving]
  - Histoplasmosis [Recovering/Resolving]

NARRATIVE: CASE EVENT DATE: 202002
